FAERS Safety Report 10188208 (Version 3)
Quarter: 2015Q4

REPORT INFORMATION
  Report Type: Report from Study
  Country: TW (occurrence: TW)
  Receive Date: 20140522
  Receipt Date: 20151112
  Transmission Date: 20160304
  Serious: Yes (Hospitalization)
  Sender: FDA-Public Use
  Company Number: TW-PFIZER INC-2011182750

PATIENT
  Age: 65 Year
  Sex: Male
  Weight: 48.5 kg

DRUGS (4)
  1. FENOTEROL [Concomitant]
     Active Substance: FENOTEROL
     Dosage: 100 UG, AS NEEDED
     Route: 055
     Dates: start: 20100929
  2. AXITINIB [Suspect]
     Active Substance: AXITINIB
     Indication: HEPATOCELLULAR CARCINOMA
     Dosage: 5 MG, 2X/DAY
     Route: 048
     Dates: start: 20110624, end: 20110807
  3. CELECOXIB. [Suspect]
     Active Substance: CELECOXIB
     Dosage: 200 MG, 1X/DAY
     Route: 048
     Dates: start: 20110722, end: 20110807
  4. NEO-CORTISONE [Concomitant]
     Indication: DRY SKIN
     Dosage: 15 G, 2X/DAY
     Route: 061
     Dates: start: 20110624, end: 20110722

REACTIONS (1)
  - Dermatitis allergic [Recovered/Resolved]

NARRATIVE: CASE EVENT DATE: 20110807
